FAERS Safety Report 16123365 (Version 1)
Quarter: 2019Q1

REPORT INFORMATION
  Report Type: Other
  Country: CA (occurrence: CA)
  Receive Date: 20190327
  Receipt Date: 20190327
  Transmission Date: 20190418
  Serious: Yes (Other)
  Sender: FDA-Public Use
  Company Number: CA-LANTHEUS-LMI-2019-00203

PATIENT
  Age: 78 Year
  Sex: Female

DRUGS (1)
  1. CARDIOLITE [Suspect]
     Active Substance: TECHNETIUM TC-99M SESTAMIBI
     Dosage: 25 MBQ, UNK
     Route: 042

REACTIONS (1)
  - Generalised erythema [Recovered/Resolved]
